FAERS Safety Report 4368416-X (Version None)
Quarter: 2004Q2

REPORT INFORMATION
  Report Type: 
  Country: None (occurrence: None)
  Receive Date: 20040525
  Receipt Date: 20040517
  Transmission Date: 20050107
  Serious: Yes (Other)
  Sender: FDA-Public Use
  Company Number: TUK2004A00056

PATIENT
  Age: 64 Year
  Sex: Male

DRUGS (5)
  1. ACTOS [Suspect]
     Indication: DIABETES MELLITUS
     Dosage: 30-40 MILLIGRAM ORAL
     Route: 048
     Dates: start: 20010301, end: 20040315
  2. AVANDAMET [Suspect]
     Indication: DIABETES MELLITUS
     Dosage: 8/1000 MILLIGRAM ORAL
     Route: 048
     Dates: start: 20040315, end: 20040426
  3. BENDROFLUAZIDE (BENDROFLUMETHIAZIDE) [Concomitant]
  4. METFORMIN HCL [Concomitant]
  5. ZESTORETIC (CARACE PLUS /01613901/) [Concomitant]

REACTIONS (1)
  - PANCYTOPENIA [None]
